FAERS Safety Report 5577406-0 (Version None)
Quarter: 2007Q4

REPORT INFORMATION
  Report Type: 
  Country: None (occurrence: None)
  Receive Date: 20071130
  Receipt Date: 20070927
  Transmission Date: 20080405
  Serious: No
  Sender: FDA-Public Use
  Company Number: US200709006874

PATIENT
  Age: 64 Year
  Sex: Female
  Weight: 72.1 kg

DRUGS (3)
  1. BYETTA [Suspect]
     Indication: TYPE 2 DIABETES MELLITUS
     Dosage: 10 UG, 2/D, SUBCUTANEOUS
     Route: 058
     Dates: start: 20050101
  2. GLIMEPIRIDE [Concomitant]
  3. COZAAR [Concomitant]

REACTIONS (3)
  - CARPAL TUNNEL SYNDROME [None]
  - PAIN [None]
  - PLANTAR FASCIITIS [None]
